FAERS Safety Report 5186673-7 (Version None)
Quarter: 2006Q4

REPORT INFORMATION
  Report Type: 
  Country: None (occurrence: None)
  Receive Date: 20061220
  Receipt Date: 20061215
  Transmission Date: 20070319
  Serious: Yes (Hospitalization)
  Sender: FDA-Public Use
  Company Number: FR-MERCK-0612FRA00053

PATIENT
  Age: 68 Year
  Sex: Male

DRUGS (10)
  1. PRIMAXIN [Suspect]
     Indication: SEPSIS
     Route: 042
     Dates: start: 20061008, end: 20061010
  2. PRIMAXIN [Suspect]
     Route: 042
     Dates: start: 20061017, end: 20061018
  3. VANCOMYCIN [Suspect]
     Indication: SEPSIS
     Route: 042
     Dates: start: 20061006, end: 20061016
  4. VANCOMYCIN [Suspect]
     Route: 042
     Dates: start: 20061017, end: 20061018
  5. AMIKACIN SULFATE [Suspect]
     Indication: SEPSIS
     Route: 042
     Dates: start: 20061006, end: 20061016
  6. AMIKACIN SULFATE [Suspect]
     Route: 042
     Dates: start: 20061017, end: 20061018
  7. CEFTAZIDIME [Concomitant]
     Route: 042
     Dates: start: 20061006, end: 20061008
  8. CIPROFLOXACIN HYDROCHLORIDE [Concomitant]
     Indication: SEPSIS
     Route: 042
     Dates: start: 20061006, end: 20061008
  9. PIPERACILLIN SODIUM AND TAZOBACTAM SODIUM [Concomitant]
     Indication: SEPSIS
     Route: 042
     Dates: start: 20061011, end: 20061014
  10. CEFOTAXIME SODIUM [Concomitant]
     Indication: SEPSIS
     Route: 042
     Dates: start: 20061015, end: 20061016

REACTIONS (1)
  - DERMATITIS EXFOLIATIVE [None]
